FAERS Safety Report 4899111-6 (Version None)
Quarter: 2006Q1

REPORT INFORMATION
  Report Type: 
  Country: None (occurrence: None)
  Receive Date: 20060130
  Receipt Date: 20060123
  Transmission Date: 20060701
  Serious: Yes (Death, Other)
  Sender: FDA-Public Use
  Company Number: 2006000556

PATIENT
  Age: 51 Year
  Sex: Male

DRUGS (4)
  1. SERTRALINE [Suspect]
     Indication: ANXIETY
     Dosage: 25 MG ORAL
     Route: 048
     Dates: start: 20051215, end: 20051216
  2. LANSOPRAZOLE [Concomitant]
  3. AMOXICILLIN [Concomitant]
  4. CLARITHROMYCIN [Concomitant]

REACTIONS (1)
  - MYOCARDIAL INFARCTION [None]
